FAERS Safety Report 9868204 (Version 1)
Quarter: 2014Q1

REPORT INFORMATION
  Report Type: Report from Study
  Country: DE (occurrence: DE)
  Receive Date: 20140204
  Receipt Date: 20140204
  Transmission Date: 20141002
  Serious: Yes (Other)
  Sender: FDA-Public Use
  Company Number: PHHY2014DE011891

PATIENT
  Sex: Female

DRUGS (3)
  1. FTY 720 [Suspect]
     Indication: MULTIPLE SCLEROSIS
     Dosage: 0.5 MG, QD
     Route: 048
     Dates: start: 20120430, end: 20131113
  2. AMANTADINE [Concomitant]
     Indication: FATIGUE
     Dosage: 100 MG, BID
     Route: 048
     Dates: start: 20120301, end: 20120612
  3. VITAMIN B-COMPLEX [Concomitant]
     Indication: VITAMIN B6 DEFICIENCY
     Dosage: 100 MG, QD
     Dates: start: 20121213

REACTIONS (1)
  - Cervix carcinoma stage 0 [Unknown]
